FAERS Safety Report 5607086-7 (Version None)
Quarter: 2008Q1

REPORT INFORMATION
  Report Type: 
  Country: None (occurrence: None)
  Receive Date: 20080129
  Receipt Date: 20080121
  Transmission Date: 20080703
  Serious: Yes (Disabling, Other)
  Sender: FDA-Public Use
  Company Number: CA-PFIZER INC-2008005434

PATIENT
  Age: 77 Year
  Sex: Female

DRUGS (5)
  1. LIPITOR [Suspect]
     Indication: TYPE IIA HYPERLIPIDAEMIA
     Route: 048
  2. DILTIAZEM HCL [Concomitant]
     Route: 048
  3. WARFARIN SODIUM [Concomitant]
     Route: 048
  4. ACCUPRIL [Concomitant]
     Route: 048
  5. ASAPHEN [Concomitant]
     Route: 048

REACTIONS (7)
  - BLOOD ALKALINE PHOSPHATASE INCREASED [None]
  - DRUG INEFFECTIVE [None]
  - GAIT DISTURBANCE [None]
  - INJURY [None]
  - MENISCUS LESION [None]
  - MYALGIA [None]
  - SKULL FRACTURE [None]
